FAERS Safety Report 17285552 (Version 1)
Quarter: 2020Q1

REPORT INFORMATION
  Report Type: Not Available
  Country: US (occurrence: US)
  Receive Date: 20200117
  Receipt Date: 20200117
  Transmission Date: 20200409
  Serious: No
  Sender: FDA-Public Use
  Company Number: US-NEUROCRINE BIOSCIENCES INC.-2020NBI00143

PATIENT
  Sex: Female

DRUGS (19)
  1. CREON [Concomitant]
     Active Substance: PANCRELIPASE AMYLASE\PANCRELIPASE LIPASE\PANCRELIPASE PROTEASE
  2. ELIQUIS [Concomitant]
     Active Substance: APIXABAN
  3. METFORMIN [Concomitant]
     Active Substance: METFORMIN HYDROCHLORIDE
  4. COENZYME Q10 [Concomitant]
     Active Substance: UBIDECARENONE
  5. VITAMIN D [Concomitant]
     Active Substance: VITAMIN D NOS
  6. INGREZZA [Suspect]
     Active Substance: VALBENAZINE
     Indication: TARDIVE DYSKINESIA
     Route: 048
  7. ACETYLCYSTEINE. [Concomitant]
     Active Substance: ACETYLCYSTEINE
  8. NOVOLOG [Concomitant]
     Active Substance: INSULIN ASPART
  9. MAGNESIUM [Concomitant]
     Active Substance: MAGNESIUM
  10. HYDRALAZINE [Concomitant]
     Active Substance: HYDRALAZINE HYDROCHLORIDE
  11. HYDROCHLOROTHIAZIDE. [Concomitant]
     Active Substance: HYDROCHLOROTHIAZIDE
  12. DILTIAZEM. [Concomitant]
     Active Substance: DILTIAZEM
  13. MVI [Concomitant]
     Active Substance: VITAMINS
  14. LANTUS [Concomitant]
     Active Substance: INSULIN GLARGINE
  15. BIOTIN [Concomitant]
     Active Substance: BIOTIN
  16. GABAPENTIN. [Concomitant]
     Active Substance: GABAPENTIN
  17. CALCIUM [Concomitant]
     Active Substance: CALCIUM
  18. LISINOPRIL. [Concomitant]
     Active Substance: LISINOPRIL
  19. SOTALOL. [Concomitant]
     Active Substance: SOTALOL

REACTIONS (1)
  - Somnolence [Unknown]
